FAERS Safety Report 5659758-6 (Version None)
Quarter: 2008Q1

REPORT INFORMATION
  Report Type: 
  Country: None (occurrence: None)
  Receive Date: 20080311
  Receipt Date: 20070709
  Transmission Date: 20080703
  Serious: No
  Sender: FDA-Public Use
  Company Number: US-BAYER-200712195BCC

PATIENT
  Age: 52 Year
  Sex: Male
  Weight: 152 kg

DRUGS (3)
  1. ALEVE [Suspect]
     Indication: BACK PAIN
     Dosage: TOTAL DAILY DOSE: 440 MG  UNIT DOSE: 220 MG
     Route: 048
     Dates: start: 20070708
  2. ALEVE [Suspect]
     Dosage: UNIT DOSE: 220 MG
     Route: 048
     Dates: start: 20070709
  3. METHOCARBAMOL [Concomitant]
     Indication: BACK PAIN

REACTIONS (2)
  - ILL-DEFINED DISORDER [None]
  - NO ADVERSE EVENT [None]
